FAERS Safety Report 4483839-6 (Version None)
Quarter: 2004Q4

REPORT INFORMATION
  Report Type: 
  Country: None (occurrence: None)
  Receive Date: 20041021
  Receipt Date: 20041004
  Transmission Date: 20050328
  Serious: Yes (Other)
  Sender: FDA-Public Use
  Company Number: A03200403364

PATIENT
  Age: 79 Year
  Sex: Female

DRUGS (1)
  1. AMBIEN [Suspect]
     Indication: INSOMNIA
     Dosage: 5MG AT 9 PM THEN 5 MG, AT 11PM AND 10 MG AT 4PM; ORAL
     Route: 048
     Dates: start: 20040708, end: 20040709

REACTIONS (4)
  - HAEMORRHAGE [None]
  - MOUTH INJURY [None]
  - OVERDOSE [None]
  - SKIN LACERATION [None]
